FAERS Safety Report 9270900 (Version 2)
Quarter: 2013Q3

REPORT INFORMATION
  Report Type: Spontaneous
  Country: US (occurrence: US)
  Receive Date: 20130506
  Receipt Date: 20130719
  Transmission Date: 20140515
  Serious: No
  Sender: FDA-Public Use
  Company Number: US-009507513-1304USA014404

PATIENT
  Age: 52 Year
  Sex: Female
  Weight: 78.46 kg

DRUGS (14)
  1. PEGINTRON [Suspect]
     Indication: HEPATITIS C
     Dosage: 150 MICROGRAM, QW
     Route: 058
     Dates: start: 20130316, end: 201304
  2. PEGINTRON [Suspect]
     Dosage: REDIPEN, 120 MICROGRAM ((0.5 ML)), QW, FREQUENCY: ADMINISTER 96 MCG (0.4ML)
     Route: 058
     Dates: start: 201304
  3. VICTRELIS [Suspect]
     Dosage: 200 MG, TAKEN 4 CAPSULES BY MOUTH THREE TIMES A DAY (EVERY 7-9 HOURS) WITH FOOD
     Route: 048
  4. REBETOL [Suspect]
     Route: 048
  5. ZANTAC [Concomitant]
     Dosage: 150 MG
  6. VITAMINS (UNSPECIFIED) [Concomitant]
  7. TRAMADOL HYDROCHLORIDE [Concomitant]
     Dosage: 50 MG
  8. ONDANSETRON [Concomitant]
     Dosage: 4 MG
  9. VITAMIN E [Concomitant]
     Dosage: 1000 UNIT
  10. KEFLEX [Concomitant]
     Dosage: 500 MG
  11. PROAIR HFA [Concomitant]
  12. RIBAPAK [Concomitant]
     Dosage: PAK 1200/DAY
  13. NEUPOGEN [Concomitant]
     Dosage: 300 MICROGRAM
  14. ERGOCALCIFEROL [Concomitant]
     Dosage: 400 UNITS

REACTIONS (6)
  - Alopecia [Unknown]
  - White blood cell count decreased [Not Recovered/Not Resolved]
  - Drug dose omission [Unknown]
  - Fatigue [Unknown]
  - Nausea [Unknown]
  - White blood cell count decreased [Unknown]
